FAERS Safety Report 11211237 (Version 1)
Quarter: 2015Q2

REPORT INFORMATION
  Report Type: Spontaneous
  Country: US (occurrence: None)
  Receive Date: 20150619
  Receipt Date: 20150619
  Transmission Date: 20150821
  Serious: Yes (Hospitalization)
  Sender: FDA-Public Use
  Company Number: None

PATIENT
  Age: 89 Year
  Sex: Female
  Weight: 56.5 kg

DRUGS (13)
  1. LOVENOX [Concomitant]
     Active Substance: ENOXAPARIN SODIUM
  2. COREG [Concomitant]
     Active Substance: CARVEDILOL
  3. LEVOTHROID [Concomitant]
     Active Substance: LEVOTHYROXINE SODIUM
  4. NTG [Concomitant]
     Active Substance: NITROGLYCERIN
  5. PROTONIX [Concomitant]
     Active Substance: PANTOPRAZOLE SODIUM
  6. PHENOL SPRAY [Concomitant]
  7. TIMOLOL [Concomitant]
     Active Substance: TIMOLOL
  8. SEROQUEL [Concomitant]
     Active Substance: QUETIAPINE FUMARATE
  9. XALATAN [Concomitant]
     Active Substance: LATANOPROST
  10. RANEXA [Concomitant]
     Active Substance: RANOLAZINE
  11. COLACE [Concomitant]
     Active Substance: DOCUSATE SODIUM
  12. MORPHINE [Suspect]
     Active Substance: MORPHINE
     Indication: PROCEDURAL PAIN
     Dosage: 2 MG, Q2HR PRN
     Route: 042
  13. BUMEX [Concomitant]
     Active Substance: BUMETANIDE

REACTIONS (3)
  - Respiratory failure [None]
  - Confusional state [None]
  - Mental status changes [None]

NARRATIVE: CASE EVENT DATE: 20141220
